FAERS Safety Report 11242700 (Version 2)
Quarter: 2015Q4

REPORT INFORMATION
  Report Type: Report from Study
  Country: BR (occurrence: BR)
  Receive Date: 20150707
  Receipt Date: 20151007
  Transmission Date: 20160304
  Serious: Yes (Other)
  Sender: FDA-Public Use
  Company Number: PHHY2014BR039383

PATIENT
  Age: 20 Year
  Sex: Female
  Weight: 63.6 kg

DRUGS (7)
  1. LAMOTRIGINE. [Concomitant]
     Active Substance: LAMOTRIGINE
     Indication: DEPRESSION
     Dosage: 25 MG, QD
     Route: 048
     Dates: start: 20140212
  2. CICLO [Concomitant]
     Indication: CONTRACEPTION
     Dosage: 1 CPR PER DAY (QD)
     Route: 048
     Dates: start: 20121129
  3. FLUOXETINE [Concomitant]
     Active Substance: FLUOXETINE HYDROCHLORIDE
     Indication: DEPRESSION
     Dosage: 20 MG, QD
     Route: 048
     Dates: start: 201409
  4. OXCARBAZEPINE. [Concomitant]
     Active Substance: OXCARBAZEPINE
     Indication: SEIZURE
     Dosage: 300 MG/ 12/12H
     Route: 048
     Dates: start: 201504
  5. EVEROLIMUS [Suspect]
     Active Substance: EVEROLIMUS
     Indication: TUBEROUS SCLEROSIS
     Dosage: 5 MG, QD
     Route: 048
     Dates: start: 20101125
  6. RISPERIDONE. [Concomitant]
     Active Substance: RISPERIDONE
     Indication: DEPRESSION
     Dosage: 1 DF, Q12H
     Route: 048
     Dates: end: 20140305
  7. DEPAKENE [Concomitant]
     Active Substance: VALPROIC ACID
     Indication: SEIZURE
     Dosage: 500 MG/1CP 12H/H
     Route: 048
     Dates: start: 2014

REACTIONS (4)
  - Neoplasm [Not Recovered/Not Resolved]
  - Alopecia [Recovered/Resolved]
  - Immunosuppressant drug level decreased [Recovering/Resolving]
  - Blood test abnormal [Recovered/Resolved]

NARRATIVE: CASE EVENT DATE: 201401
